FAERS Safety Report 12996098 (Version 4)
Quarter: 2022Q2

REPORT INFORMATION
  Report Type: Spontaneous
  Country: FR (occurrence: FR)
  Receive Date: 20161202
  Receipt Date: 20220411
  Transmission Date: 20220721
  Serious: Yes (Death, Life-Threatening, Hospitalization, Other)
  Sender: FDA-Public Use
  Company Number: FR-MLMSERVICE-20161123-0509896-1

PATIENT
  Age: 34 Year
  Sex: Male

DRUGS (9)
  1. DIAZEPAM [Suspect]
     Active Substance: DIAZEPAM
     Indication: Bipolar disorder
     Route: 065
  2. TRAMADOL [Suspect]
     Active Substance: TRAMADOL
     Indication: Abdominal pain
     Route: 065
     Dates: start: 20120625
  3. MORPHINE [Suspect]
     Active Substance: MORPHINE
     Indication: Abdominal pain
     Route: 042
     Dates: start: 20120625
  4. QUETIAPINE [Suspect]
     Active Substance: QUETIAPINE
     Indication: Bipolar disorder
     Route: 048
     Dates: start: 20120605
  5. VALPROIC ACID [Suspect]
     Active Substance: VALPROIC ACID
     Indication: Bipolar disorder
     Route: 065
  6. LOXAPINE [Suspect]
     Active Substance: LOXAPINE
     Indication: Bipolar disorder
     Dosage: 275 AND100 MG ; AS REQUIRED
     Route: 048
     Dates: start: 20120614
  7. LOXAPINE [Suspect]
     Active Substance: LOXAPINE
     Dosage: 275 PLUS 100 MG ; AS REQUIRED
     Route: 048
     Dates: start: 20120614
  8. LOXAPINE [Suspect]
     Active Substance: LOXAPINE
     Route: 030
     Dates: start: 20120625
  9. TROPATEPINE [Suspect]
     Active Substance: TROPATEPINE
     Indication: Bipolar disorder
     Route: 065
     Dates: start: 20120605

REACTIONS (12)
  - Subileus [Fatal]
  - Large intestine perforation [Fatal]
  - Metabolic acidosis [Fatal]
  - Septic shock [Fatal]
  - Gastric haemorrhage [Fatal]
  - Multiple organ dysfunction syndrome [Fatal]
  - Cardiac arrest [Fatal]
  - Intestinal ischaemia [Fatal]
  - Necrotising colitis [Fatal]
  - Staphylococcal bacteraemia [Fatal]
  - Candida infection [Fatal]
  - Pneumonia pseudomonal [Fatal]

NARRATIVE: CASE EVENT DATE: 20120625
